FAERS Safety Report 4526561-X (Version None)
Quarter: 2004Q4

REPORT INFORMATION
  Report Type: 
  Country: None (occurrence: None)
  Receive Date: 20041210
  Receipt Date: 20041130
  Transmission Date: 20050328
  Serious: Yes (Hospitalization)
  Sender: FDA-Public Use
  Company Number: 2004081551

PATIENT
  Age: 34 Year
  Sex: Female
  Weight: 50 kg

DRUGS (4)
  1. ZITHROMAX [Suspect]
     Indication: ASTHMA
     Dosage: 500 MG (1 D), ORAL
     Route: 048
     Dates: start: 20041007, end: 20041009
  2. MONTELUKAST SODIUM (MONTELUKAST SODIUM) [Suspect]
     Indication: ASTHMA
     Dosage: ORAL
     Route: 048
     Dates: start: 20041007, end: 20041012
  3. IBUPROFEN [Suspect]
     Indication: ASTHMA
     Dosage: 300 MG (100 MG, 3 IN 1 D), ORAL
     Route: 048
     Dates: start: 20041007, end: 20041012
  4. PROCATEROL HCL [Suspect]
     Indication: ASTHMA
     Dosage: 0.1 MG (0.05 MG, 2 IN 1 D), ORAL
     Route: 048
     Dates: start: 20041007, end: 20041012

REACTIONS (15)
  - ALANINE AMINOTRANSFERASE INCREASED [None]
  - ASPARTATE AMINOTRANSFERASE INCREASED [None]
  - BLOOD ALKALINE PHOSPHATASE INCREASED [None]
  - BLOOD LACTATE DEHYDROGENASE INCREASED [None]
  - EPSTEIN-BARR VIRUS INFECTION [None]
  - GAMMA-GLUTAMYLTRANSFERASE INCREASED [None]
  - HAEMORRHAGE SUBCUTANEOUS [None]
  - HEPATIC FUNCTION ABNORMAL [None]
  - LYMPHADENOPATHY [None]
  - PAIN [None]
  - PHARYNGEAL ERYTHEMA [None]
  - PRURITUS GENERALISED [None]
  - PYREXIA [None]
  - RASH [None]
  - STOMATITIS [None]
